FAERS Safety Report 7730305-8 (Version None)
Quarter: 2011Q3

REPORT INFORMATION
  Report Type: 
  Country: None (occurrence: None)
  Receive Date: 20110901
  Receipt Date: 20110901
  Transmission Date: 20111222
  Serious: Yes (Life-Threatening, Hospitalization, Disabling, Other)
  Sender: FDA-Public Use
  Company Number: None

PATIENT
  Sex: Male
  Weight: 67.1324 kg

DRUGS (2)
  1. PROPOXYPHENE NAPSYLATE AND ACETAMINOPHEN [Suspect]
     Indication: PAIN
     Dosage: EVERY 4-6 HOURS
     Dates: end: 20101119
  2. PROPOXYPHENE NAPSYLATE AND ACETAMINOPHEN [Suspect]
     Indication: HEADACHE
     Dosage: EVERY 4-6 HOURS
     Dates: end: 20101119

REACTIONS (6)
  - MUSCLE TWITCHING [None]
  - EYE PAIN [None]
  - CEREBROVASCULAR ACCIDENT [None]
  - HYPOAESTHESIA [None]
  - HEART RATE INCREASED [None]
  - TREMOR [None]
